FAERS Safety Report 23100851 (Version 1)
Quarter: 2023Q4

REPORT INFORMATION
  Report Type: Spontaneous
  Country: US (occurrence: None)
  Receive Date: 20231021
  Receipt Date: 20231021
  Transmission Date: 20240110
  Serious: Yes (Hospitalization)
  Sender: FDA-Public Use
  Company Number: None

PATIENT
  Age: 84 Year
  Sex: Male

DRUGS (1)
  1. DAPSONE [Suspect]
     Active Substance: DAPSONE
     Dates: start: 20221215, end: 20221229

REACTIONS (2)
  - Methaemoglobinaemia [None]
  - Hypoxia [None]

NARRATIVE: CASE EVENT DATE: 20221229
